FAERS Safety Report 5287855-6 (Version None)
Quarter: 2007Q2

REPORT INFORMATION
  Report Type: 
  Country: None (occurrence: None)
  Receive Date: 20070403
  Receipt Date: 20070403
  Transmission Date: 20071010
  Serious: No
  Sender: FDA-Public Use
  Company Number: None

PATIENT
  Age: 47 Year
  Sex: Male

DRUGS (2)
  1. PEG-INTRON [Suspect]
     Indication: HEPATITIS C
     Dosage: 120MCG  QWEEK  SQ
  2. RIBAVIRIN [Suspect]
     Dosage: 200MG CAPS  1200MG QD  PO
     Route: 048

REACTIONS (1)
  - ANAEMIA [None]
